FAERS Safety Report 8343622-8 (Version None)
Quarter: 2012Q2

REPORT INFORMATION
  Report Type: 
  Country: None (occurrence: None)
  Receive Date: 20120508
  Receipt Date: 20100826
  Transmission Date: 20120825
  Serious: No
  Sender: FDA-Public Use
  Company Number: US-TEVA-2010003315

PATIENT
  Sex: Female
  Weight: 61.744 kg

DRUGS (2)
  1. TREANDA [Suspect]
     Indication: LYMPHOMA
     Route: 042
     Dates: start: 20100118, end: 20100608
  2. RITUXAN [Concomitant]
     Dates: start: 20100118, end: 20100608

REACTIONS (3)
  - INJECTION SITE DISCOMFORT [None]
  - INJECTION SITE THROMBOSIS [None]
  - INJECTION SITE PHLEBITIS [None]
